FAERS Safety Report 7452489-1 (Version None)
Quarter: 2011Q2

REPORT INFORMATION
  Report Type: 
  Country: None (occurrence: None)
  Receive Date: 20110502
  Receipt Date: 20100927
  Transmission Date: 20111010
  Serious: No
  Sender: FDA-Public Use
  Company Number: US-ASTRAZENECA-2010SE45403

PATIENT
  Age: 89 Year
  Sex: Female
  Weight: 56.2 kg

DRUGS (7)
  1. LISINOPRIL [Concomitant]
  2. ZANTAC [Concomitant]
  3. SYNTHROID [Concomitant]
  4. ASPIRIN [Concomitant]
  5. ESTRADIAL PATCH [Concomitant]
  6. NEXIUM [Suspect]
     Indication: GASTROOESOPHAGEAL REFLUX DISEASE
     Route: 048
     Dates: start: 20030101, end: 20100913
  7. VITAMINS [Concomitant]

REACTIONS (4)
  - DIARRHOEA [None]
  - WEIGHT DECREASED [None]
  - BONE DENSITY DECREASED [None]
  - ARTHROPATHY [None]
